FAERS Safety Report 17648779 (Version 1)
Quarter: 2020Q2

REPORT INFORMATION
  Report Type: Spontaneous
  Country: US (occurrence: US)
  Receive Date: 20200409
  Receipt Date: 20200409
  Transmission Date: 20200713
  Serious: No
  Sender: FDA-Public Use
  Company Number: US-GW PHARMA-202003USGW01287

PATIENT

DRUGS (3)
  1. EPIDIOLEX [Suspect]
     Active Substance: CANNABIDIOL
     Indication: LENNOX-GASTAUT SYNDROME
     Dosage: 5.5 MG/KG/DAY, 150 MILLIGRAM, BID
     Route: 048
     Dates: start: 20200313, end: 202003
  2. EPIDIOLEX [Suspect]
     Active Substance: CANNABIDIOL
     Dosage: 5.5 MG/KG/DAY, 150 MILLIGRAM, BID (REDUCED DOSE)
     Route: 048
     Dates: start: 202003
  3. EPIDIOLEX [Suspect]
     Active Substance: CANNABIDIOL
     Dosage: 11.13 MG/KG/DAY, 300 MILLIGRAM, BID
     Route: 048
     Dates: start: 202003, end: 202003

REACTIONS (3)
  - Depressed level of consciousness [Unknown]
  - Gait inability [Unknown]
  - Lethargy [Unknown]

NARRATIVE: CASE EVENT DATE: 20200327
